FAERS Safety Report 20906629 (Version 1)
Quarter: 2022Q2

REPORT INFORMATION
  Report Type: Other
  Country: US (occurrence: None)
  Receive Date: 20220602
  Receipt Date: 20220602
  Transmission Date: 20220721
  Serious: Yes (Hospitalization)
  Sender: FDA-Public Use
  Company Number: US-ROCHE-2996506

PATIENT
  Sex: Female

DRUGS (3)
  1. ZELBORAF [Suspect]
     Active Substance: VEMURAFENIB
     Indication: Lung neoplasm malignant
     Dosage: 2 TABLETS IN AM AND 2 TABLETS IN PM
     Route: 048
  2. ZELBORAF [Suspect]
     Active Substance: VEMURAFENIB
     Indication: Metastases to bone
  3. ZELBORAF [Suspect]
     Active Substance: VEMURAFENIB
     Indication: Metastases to bone

REACTIONS (2)
  - Off label use [Unknown]
  - Metastatic neoplasm [Unknown]
